FAERS Safety Report 4448464-1 (Version None)
Quarter: 2004Q3

REPORT INFORMATION
  Report Type: 
  Country: None (occurrence: None)
  Receive Date: 20040909
  Receipt Date: 20040831
  Transmission Date: 20050211
  Serious: Yes (Death)
  Sender: FDA-Public Use
  Company Number: 04H-028-0272048-00

PATIENT
  Age: 73 Year
  Sex: Male

DRUGS (6)
  1. HEPARIN SODIUM [Suspect]
     Indication: ANGINA UNSTABLE
     Dosage: INTRAVENOUS
     Route: 042
  2. HEPARIN SODIUM [Suspect]
     Dosage: SEE IMAGE
     Route: 042
  3. NITROGLYCERIN [Concomitant]
  4. DOPAMINE HCL [Concomitant]
  5. LEVOTHYROXINE SODIUM [Concomitant]
  6. EPINEPHRINE [Concomitant]

REACTIONS (7)
  - HEPARIN-INDUCED THROMBOCYTOPENIA [None]
  - HYPOTENSION [None]
  - INTRACARDIAC THROMBUS [None]
  - THERAPY NON-RESPONDER [None]
  - THROMBOSIS [None]
  - VASCULAR BYPASS GRAFT [None]
  - VENTRICULAR DYSFUNCTION [None]
